FAERS Safety Report 20994167 (Version 1)
Quarter: 2022Q2

REPORT INFORMATION
  Report Type: Spontaneous
  Country: FR (occurrence: FR)
  Receive Date: 20220622
  Receipt Date: 20220622
  Transmission Date: 20220721
  Serious: Yes (Hospitalization)
  Sender: FDA-Public Use
  Company Number: None

PATIENT
  Age: 33 Year
  Sex: Male

DRUGS (1)
  1. FENTANYL [Suspect]
     Active Substance: FENTANYL
     Indication: Product used for unknown indication
     Dosage: UNK, QD (NUMBER OF PATCHES CHEWED PER DAY UNKNOWN BUT SEVERAL/24H, EVERY DAY)
     Route: 048
     Dates: start: 2021

REACTIONS (3)
  - Drug dependence [Not Recovered/Not Resolved]
  - Toxicity to various agents [Recovered/Resolved]
  - Intentional product misuse [Not Recovered/Not Resolved]

NARRATIVE: CASE EVENT DATE: 20210101
